FAERS Safety Report 15830482 (Version 3)
Quarter: 2020Q2

REPORT INFORMATION
  Report Type: Report from Study
  Country: None (occurrence: US)
  Receive Date: 20190115
  Receipt Date: 20200424
  Transmission Date: 20200713
  Serious: Yes (Hospitalization, Other)
  Sender: FDA-Public Use
  Company Number: US-ABBVIE-19K-163-2622605-00

PATIENT
  Age: 58 Year
  Sex: Female

DRUGS (5)
  1. HUMIRA [Suspect]
     Active Substance: ADALIMUMAB
     Indication: RHEUMATOID ARTHRITIS
     Route: 058
     Dates: start: 201804, end: 2018
  2. HUMIRA [Suspect]
     Active Substance: ADALIMUMAB
     Route: 058
     Dates: end: 201910
  3. PLAQUENIL [Concomitant]
     Active Substance: HYDROXYCHLOROQUINE SULFATE
     Indication: PRODUCT USED FOR UNKNOWN INDICATION
  4. FOLIC ACID. [Concomitant]
     Active Substance: FOLIC ACID
     Indication: PRODUCT USED FOR UNKNOWN INDICATION
  5. LEFLUNOMIDE. [Concomitant]
     Active Substance: LEFLUNOMIDE
     Indication: PRODUCT USED FOR UNKNOWN INDICATION

REACTIONS (23)
  - Gait disturbance [Not Recovered/Not Resolved]
  - Peripheral swelling [Recovering/Resolving]
  - Post procedural infection [Recovered/Resolved]
  - Wrong technique in product usage process [Unknown]
  - Back disorder [Unknown]
  - Fractured coccyx [Unknown]
  - Knee arthroplasty [Unknown]
  - Loss of personal independence in daily activities [Not Recovered/Not Resolved]
  - Spinal cord infection [Unknown]
  - Wrong technique in product usage process [Unknown]
  - Knee arthroplasty [Unknown]
  - Impaired self-care [Not Recovered/Not Resolved]
  - Musculoskeletal pain [Recovering/Resolving]
  - Pain in extremity [Recovering/Resolving]
  - Musculoskeletal stiffness [Not Recovered/Not Resolved]
  - Peripheral swelling [Not Recovered/Not Resolved]
  - Pain in extremity [Not Recovered/Not Resolved]
  - Cellulitis [Unknown]
  - Device difficult to use [Unknown]
  - Swelling [Recovering/Resolving]
  - Rheumatoid arthritis [Not Recovered/Not Resolved]
  - Post procedural infection [Unknown]
  - Device difficult to use [Unknown]

NARRATIVE: CASE EVENT DATE: 2018
